FAERS Safety Report 5420005-1 (Version None)
Quarter: 2007Q3

REPORT INFORMATION
  Report Type: 
  Country: None (occurrence: None)
  Receive Date: 20070815
  Receipt Date: 20070802
  Transmission Date: 20080115
  Serious: Yes (Other)
  Sender: FDA-Public Use
  Company Number: 2007JP003674

PATIENT
  Age: 70 Year
  Sex: Male

DRUGS (5)
  1. FUNGUARD(MICAFUNGIN) INJECTION [Suspect]
     Indication: PYREXIA
     Dosage: 150 MG, D, IV DRIP
     Route: 041
     Dates: start: 20070731, end: 20070801
  2. TARGOCID [Suspect]
     Indication: PYREXIA
     Dosage: 400 MG, D, IV DRIP
     Route: 041
     Dates: end: 20070801
  3. VANCOMYCIN [Suspect]
     Indication: PYREXIA
     Dosage: 2 G, D, IV DRIP
     Route: 041
     Dates: start: 20070802
  4. PASIL(PAZUFLOXACIN) INJECTION [Suspect]
     Indication: PYREXIA
     Dosage: 1 G, D, IV DRIP
     Route: 041
  5. VFEND(VORICONAZOLE) PER ORAL NOS [Suspect]
     Indication: PYREXIA
     Dosage: ORAL
     Route: 048

REACTIONS (1)
  - BLOOD CREATINE PHOSPHOKINASE INCREASED [None]
